FAERS Safety Report 14539735 (Version 1)
Quarter: 2018Q1

REPORT INFORMATION
  Report Type: Spontaneous
  Country: US (occurrence: US)
  Receive Date: 20180215
  Receipt Date: 20180215
  Transmission Date: 20180509
  Serious: Yes (Life-Threatening, Other)
  Sender: FDA-Public Use
  Company Number: None

PATIENT
  Age: 5 Year
  Sex: Male
  Weight: 16.83 kg

DRUGS (4)
  1. NEBULIZER [Concomitant]
     Active Substance: DEVICE
  2. TAMIFLU [Suspect]
     Active Substance: OSELTAMIVIR PHOSPHATE
  3. CLONIDINE. [Concomitant]
     Active Substance: CLONIDINE
  4. ALBUTEROL. [Concomitant]
     Active Substance: ALBUTEROL

REACTIONS (2)
  - Poor quality sleep [None]
  - Hallucination [None]

NARRATIVE: CASE EVENT DATE: 20180214
